FAERS Safety Report 5878564-0 (Version None)
Quarter: 2008Q3

REPORT INFORMATION
  Report Type: 
  Country: None (occurrence: None)
  Receive Date: 20080910
  Receipt Date: 20080829
  Transmission Date: 20090109
  Serious: Yes (Death)
  Sender: FDA-Public Use
  Company Number: 95133

PATIENT
  Age: 6 Month
  Sex: Female

DRUGS (1)
  1. PROMETHAZINE [Suspect]

REACTIONS (1)
  - PNEUMONITIS [None]
